FAERS Safety Report 21234120 (Version 1)
Quarter: 2022Q3

REPORT INFORMATION
  Report Type: Spontaneous
  Country: CN (occurrence: None)
  Receive Date: 20220819
  Receipt Date: 20220819
  Transmission Date: 20221027
  Serious: Yes (Other)
  Sender: FDA-Public Use
  Company Number: 2022A288774

PATIENT
  Age: 29589 Day
  Sex: Female

DRUGS (3)
  1. TICAGRELOR [Suspect]
     Active Substance: TICAGRELOR
     Indication: Platelet disorder
     Route: 048
     Dates: start: 20220712, end: 20220802
  2. THROMBIN [Concomitant]
     Active Substance: THROMBIN
     Indication: Haemostasis
     Dosage: 500U TID
     Dates: start: 20220716, end: 20220722
  3. THROMBIN [Concomitant]
     Active Substance: THROMBIN
     Indication: Haemostasis
     Dosage: 500U TID
     Dates: start: 20220729

REACTIONS (2)
  - Gastrointestinal mucosal disorder [Recovering/Resolving]
  - Upper gastrointestinal haemorrhage [Recovering/Resolving]

NARRATIVE: CASE EVENT DATE: 20220729
